FAERS Safety Report 6277630-8 (Version None)
Quarter: 2009Q3

REPORT INFORMATION
  Report Type: 
  Country: None (occurrence: None)
  Receive Date: 20090720
  Receipt Date: 20090706
  Transmission Date: 20100115
  Serious: Yes (Other)
  Sender: FDA-Public Use
  Company Number: 1000007488

PATIENT
  Age: 24 Year
  Sex: Female

DRUGS (3)
  1. ESCITALOPRAM [Suspect]
     Indication: AFFECT LABILITY
     Dosage: 20 MG (20 MG, 1  IN 1 D), ORAL
     Route: 048
     Dates: start: 20090601, end: 20090622
  2. ESCITALOPRAM [Suspect]
     Indication: AFFECT LABILITY
     Dosage: 10 MG (10 MG, 1 IN 1 D), ORAL
     Route: 048
     Dates: start: 20090602, end: 20090601
  3. SEROQUEL [Concomitant]

REACTIONS (4)
  - ABSCESS JAW [None]
  - OEDEMA MOUTH [None]
  - SWOLLEN TONGUE [None]
  - TOOTH ABSCESS [None]
